FAERS Safety Report 11068555 (Version 5)
Quarter: 2016Q1

REPORT INFORMATION
  Report Type: Spontaneous
  Country: US (occurrence: US)
  Receive Date: 20150427
  Receipt Date: 20160324
  Transmission Date: 20160525
  Serious: No
  Sender: FDA-Public Use
  Company Number: US-PFIZER INC-2015137324

PATIENT
  Age: 57 Year
  Sex: Female

DRUGS (4)
  1. IBRANCE [Suspect]
     Active Substance: PALBOCICLIB
     Dosage: 75 MG, CYCLIC (DAILY, FOR 21 DAYS AND 7 DAYS OFF)
     Route: 048
     Dates: start: 20150619
  2. LETROZOLE. [Suspect]
     Active Substance: LETROZOLE
     Dosage: 2.5 MG, UNK
     Dates: start: 20150412
  3. IBRANCE [Suspect]
     Active Substance: PALBOCICLIB
     Indication: BREAST CANCER METASTATIC
     Dosage: 125 MG,CYCLIC (ONCE DAILY WITH FOOD FOR 21 DAYS THEN 7 DAYS OFF)
     Route: 048
     Dates: start: 20150323
  4. IBRANCE [Suspect]
     Active Substance: PALBOCICLIB
     Dosage: 100 MG, CYCLIC (ONCE DAILY WITH FOOD FOR 21 DAYS THEN 7 DAYS OFF)
     Route: 048
     Dates: start: 20150413

REACTIONS (13)
  - Anxiety [Unknown]
  - Depression [Unknown]
  - Pain in extremity [Unknown]
  - Fatigue [Unknown]
  - Hypoaesthesia [Unknown]
  - White blood cell count decreased [Unknown]
  - Insomnia [Unknown]
  - Nausea [Unknown]
  - Cystitis [Not Recovered/Not Resolved]
  - Pain in extremity [Unknown]
  - Thrombosis [Unknown]
  - Peripheral swelling [Unknown]
  - Memory impairment [Unknown]

NARRATIVE: CASE EVENT DATE: 2015
